FAERS Safety Report 8363913-4 (Version None)
Quarter: 2012Q2

REPORT INFORMATION
  Report Type: 
  Country: None (occurrence: None)
  Receive Date: 20120516
  Receipt Date: 20120126
  Transmission Date: 20120825
  Serious: No
  Sender: FDA-Public Use
  Company Number: US-ALEXION-A201200144

PATIENT
  Sex: Female
  Weight: 70.748 kg

DRUGS (16)
  1. LOSARTAN POTASSIUM [Concomitant]
     Indication: HYPERTENSION
     Dosage: 50 MG, BID
  2. MULTI-VITAMINS [Concomitant]
     Indication: SUPPLEMENTATION THERAPY
     Dosage: UNK, QD
  3. SODIUM BICARBONATE [Concomitant]
     Indication: SUPPLEMENTATION THERAPY
     Dosage: 1300 MG, BID
  4. ASPIRIN [Concomitant]
     Indication: SUPPLEMENTATION THERAPY
     Dosage: UNK, QD
  5. AMLODIPINE BESYLATE [Concomitant]
     Indication: HYPERTENSION
     Dosage: 2.5 MG, QD
  6. FOLIC ACID [Concomitant]
     Indication: PAROXYSMAL NOCTURNAL HAEMOGLOBINURIA
     Dosage: 1 MG, BID
  7. JANUVIA [Concomitant]
     Indication: DIABETES MELLITUS
     Dosage: 100 MG, QD
  8. LOVAZA [Concomitant]
     Indication: SUPPLEMENTATION THERAPY
     Dosage: 750 MG, TID
  9. SYNTHROID [Concomitant]
     Indication: HYPOTHYROIDISM
     Dosage: 175 UG, QD (87.5 UG ON 7TH DAY)
  10. SOLIRIS [Suspect]
     Indication: PAROXYSMAL NOCTURNAL HAEMOGLOBINURIA
     Dosage: 600 MG, QW
     Route: 042
     Dates: start: 20080701
  11. SOLIRIS [Suspect]
     Dosage: 900 MG, Q2W
     Route: 042
     Dates: start: 20080101
  12. LIPITOR [Concomitant]
     Indication: BLOOD CHOLESTEROL INCREASED
     Dosage: 20 MG, QD
  13. IRON [Concomitant]
     Indication: SUPPLEMENTATION THERAPY
     Dosage: UNK, QD
  14. CALCIUM [Concomitant]
     Indication: SUPPLEMENTATION THERAPY
     Dosage: 750 MG, BID
  15. TERAZOSIN HCL [Concomitant]
     Indication: HYPERTENSION
     Dosage: 5 MG, BID
  16. FUROSEMIDE [Concomitant]
     Indication: HYPERTENSION
     Dosage: 40 MG, QD

REACTIONS (1)
  - CATARACT [None]
